FAERS Safety Report 7448302-9 (Version None)
Quarter: 2011Q2

REPORT INFORMATION
  Report Type: 
  Country: None (occurrence: None)
  Receive Date: 20110429
  Receipt Date: 20110420
  Transmission Date: 20111010
  Serious: Yes (Other)
  Sender: FDA-Public Use
  Company Number: CA-ASTRAZENECA-2011SE22106

PATIENT
  Age: 60 Year
  Sex: Male

DRUGS (4)
  1. ATACAND [Suspect]
     Route: 048
     Dates: start: 20110415
  2. BENADRYL [Concomitant]
     Route: 048
     Dates: start: 20110401, end: 20110401
  3. ATACAND [Suspect]
     Route: 048
     Dates: start: 20080101
  4. ATACAND HCT [Suspect]
     Dosage: 16/12 MG
     Route: 048
     Dates: start: 20110201, end: 20110414

REACTIONS (11)
  - URTICARIA [None]
  - OEDEMA PERIPHERAL [None]
  - BLOOD PRESSURE INCREASED [None]
  - RASH [None]
  - ERYTHEMA [None]
  - LIP DRY [None]
  - ASTHENIA [None]
  - SUNBURN [None]
  - DRUG ADMINISTRATION ERROR [None]
  - DIZZINESS [None]
  - AURICULAR SWELLING [None]
